FAERS Safety Report 9090251 (Version 1)
Quarter: 2013Q1

REPORT INFORMATION
  Report Type: Spontaneous
  Country: DE (occurrence: DE)
  Receive Date: 20130219
  Receipt Date: 20130219
  Transmission Date: 20140127
  Serious: Yes (Hospitalization)
  Sender: FDA-Public Use
  Company Number: DE-AMGEN-DEUSP2013010266

PATIENT
  Age: 71 Year
  Sex: Male

DRUGS (3)
  1. ENBREL [Suspect]
     Indication: RHEUMATOID ARTHRITIS
     Dosage: 50 MG, WEEKLY
     Dates: start: 20110101
  2. MTX                                /00113802/ [Concomitant]
     Dosage: 5 MG, UNK
     Dates: end: 20130204
  3. ORENCIA [Concomitant]
     Dosage: UNK
     Dates: end: 20130204

REACTIONS (1)
  - General physical health deterioration [Not Recovered/Not Resolved]
